FAERS Safety Report 10333483 (Version 1)
Quarter: 2014Q3

REPORT INFORMATION
  Report Type: Spontaneous
  Country: US (occurrence: US)
  Receive Date: 20140722
  Receipt Date: 20140722
  Transmission Date: 20150326
  Serious: Yes (Hospitalization)
  Sender: FDA-Public Use
  Company Number: US-GILEAD-2014-0109584

PATIENT
  Sex: Female

DRUGS (2)
  1. SOVALDI [Suspect]
     Active Substance: SOFOSBUVIR
     Indication: PRODUCT USED FOR UNKNOWN INDICATION
     Dosage: UNK
     Route: 065
     Dates: start: 201404
  2. RIBA [Concomitant]
     Active Substance: RIBAVIRIN
     Dosage: UNK
     Dates: start: 201404

REACTIONS (3)
  - Mental status changes [Unknown]
  - Hallucination, auditory [Unknown]
  - Confusional state [Unknown]

NARRATIVE: CASE EVENT DATE: 201407
